FAERS Safety Report 10650312 (Version 2)
Quarter: 2015Q1

REPORT INFORMATION
  Report Type: Other
  Country: FR (occurrence: FR)
  Receive Date: 20141213
  Receipt Date: 20150224
  Transmission Date: 20150720
  Serious: Yes (Life-Threatening)
  Sender: FDA-Public Use
  Company Number: FR-MYLANLABS-2014M1012462

PATIENT

DRUGS (6)
  1. VANCOMYCIN HYDROCHLORIDE. [Suspect]
     Active Substance: VANCOMYCIN HYDROCHLORIDE
     Indication: FEBRILE BONE MARROW APLASIA
     Dosage: 1.5 G, QD
     Route: 042
     Dates: start: 20141103, end: 20141113
  2. TIENAM [Suspect]
     Active Substance: CILASTATIN SODIUM\IMIPENEM
     Indication: FEBRILE BONE MARROW APLASIA
     Dosage: 500 MG, 4X
     Dates: start: 20141112, end: 20141114
  3. AMIKACINE [Suspect]
     Active Substance: AMIKACIN
     Indication: FEBRILE BONE MARROW APLASIA
     Dosage: 700 MG, QD
     Route: 042
     Dates: start: 20141112, end: 20141114
  4. CANCIDAS [Suspect]
     Active Substance: CASPOFUNGIN ACETATE
     Indication: FEBRILE BONE MARROW APLASIA
     Dosage: 50 UNK, UNK
     Route: 042
     Dates: end: 20141114
  5. CANCIDAS [Suspect]
     Active Substance: CASPOFUNGIN ACETATE
     Dosage: 70 MG, QD
     Route: 042
     Dates: start: 20141111
  6. TAZOCILLINE [Suspect]
     Active Substance: PIPERACILLIN SODIUM\TAZOBACTAM SODIUM
     Indication: FEBRILE BONE MARROW APLASIA
     Dosage: 3600 MG, 4X
     Route: 042
     Dates: start: 20141101, end: 20141114

REACTIONS (1)
  - Tachycardia [Recovering/Resolving]

NARRATIVE: CASE EVENT DATE: 20141112
